FAERS Safety Report 10780605 (Version 2)
Quarter: 2015Q1

REPORT INFORMATION
  Report Type: Spontaneous
  Country: US (occurrence: US)
  Receive Date: 20150210
  Receipt Date: 20150216
  Transmission Date: 20150721
  Serious: Yes (Death, Life-Threatening, Hospitalization)
  Sender: FDA-Public Use
  Company Number: US-ASTRAZENECA-2015SE10684

PATIENT
  Age: 231 Day
  Sex: Male

DRUGS (5)
  1. SYNAGIS [Suspect]
     Active Substance: PALIVIZUMAB
     Indication: TERM BIRTH
     Dosage: 100 MG/1 ML, 15 MG/KG MONTHLY
     Route: 030
  2. ATROVENT [Concomitant]
     Active Substance: IPRATROPIUM BROMIDE
  3. PULMICORT TURBUHALER [Concomitant]
     Active Substance: BUDESONIDE
  4. PREVACID [Concomitant]
     Active Substance: LANSOPRAZOLE
  5. TOBI NEBS [Concomitant]

REACTIONS (3)
  - Pulmonary hypertension [Fatal]
  - Respiratory failure [Unknown]
  - Cardiac arrest [Unknown]

NARRATIVE: CASE EVENT DATE: 20150120
